FAERS Safety Report 9556318 (Version 1)
Quarter: 2013Q3

REPORT INFORMATION
  Report Type: Spontaneous
  Country: US (occurrence: None)
  Receive Date: 20130906
  Receipt Date: 20130906
  Transmission Date: 20140515
  Serious: Yes (Disabling, Other)
  Sender: FDA-Public Use
  Company Number: 163-POMAL-13061891

PATIENT
  Age: 63 Year
  Sex: Male

DRUGS (6)
  1. POMALYST [Suspect]
     Indication: PLASMA CELL MYELOMA
     Dosage: 4 MG, 21 IN 28 D, UNK
     Dates: start: 20130510, end: 20130524
  2. NEXIUM (ESOMEPRAZOLE) [Concomitant]
  3. SENNA [Concomitant]
  4. MIRALAX [Concomitant]
  5. SYNTHROID (LEVOTHYROXINE SODIUM) [Concomitant]
  6. FENTANYL (FENTANYL) [Concomitant]

REACTIONS (2)
  - Renal failure [None]
  - Plasma cell myeloma [None]
